FAERS Safety Report 25510147 (Version 1)
Quarter: 2025Q3

REPORT INFORMATION
  Report Type: Spontaneous
  Country: US (occurrence: None)
  Receive Date: 20250702
  Receipt Date: 20250702
  Transmission Date: 20251020
  Serious: Yes (Other)
  Sender: FDA-CTU
  Company Number: None

PATIENT
  Age: 63 Year
  Sex: Female
  Weight: 54 kg

DRUGS (4)
  1. RECLAST [Suspect]
     Active Substance: ZOLEDRONIC ACID
     Indication: Osteoporosis
     Route: 042
     Dates: start: 20250527, end: 20250528
  2. LINZESS [Concomitant]
     Active Substance: LINACLOTIDE
  3. ROSUVASTATIN [Concomitant]
     Active Substance: ROSUVASTATIN
  4. VITAMINS [Suspect]
     Active Substance: VITAMINS

REACTIONS (2)
  - Pain in extremity [None]
  - Sleep disorder [None]

NARRATIVE: CASE EVENT DATE: 20250527
